FAERS Safety Report 4883766-6 (Version None)
Quarter: 2006Q1

REPORT INFORMATION
  Report Type: 
  Country: None (occurrence: None)
  Receive Date: 20060113
  Receipt Date: 20051229
  Transmission Date: 20060701
  Serious: Yes (Other)
  Sender: FDA-Public Use
  Company Number: US200601000112

PATIENT
  Age: 74 Year
  Sex: Female

DRUGS (8)
  1. FORTEO [Suspect]
     Indication: OSTEOPOROSIS
     Dates: start: 20040101
  2. FORTEO [Concomitant]
  3. MAVIK [Concomitant]
  4. TRICOR [Concomitant]
  5. COREG [Concomitant]
  6. NEXIUM             /UNK/ (ESOMEPRAZOLE) [Concomitant]
  7. HERBALS NOS W/MINERALS NOS/VITAMINS NOS (HERBAL NOS, MINERALS NOS, VIT [Concomitant]
  8. CALCIUM CARBONATE (CALCIUM CARBONATE) [Concomitant]

REACTIONS (2)
  - LABORATORY TEST ABNORMAL [None]
  - LUNG NEOPLASM MALIGNANT [None]
